FAERS Safety Report 8558877-4 (Version None)
Quarter: 2012Q3

REPORT INFORMATION
  Report Type: 
  Country: None (occurrence: None)
  Receive Date: 20120801
  Receipt Date: 20120725
  Transmission Date: 20120928
  Serious: Yes (Hospitalization)
  Sender: FDA-Public Use
  Company Number: IT-TEVA-350295ISR

PATIENT
  Sex: Female

DRUGS (9)
  1. AMIODARONE HCL [Suspect]
     Dosage: 200 MILLIGRAM;
     Route: 048
     Dates: start: 20110610, end: 20120610
  2. AMARYL [Concomitant]
  3. LEVEMIR [Concomitant]
  4. METFORMINA CLORIDRATO [Concomitant]
  5. BISOPROLOL FUMARATE [Suspect]
     Dosage: 2.5 MILLIGRAM;
     Route: 048
     Dates: start: 20110610, end: 20120610
  6. VALSARTAN [Concomitant]
  7. FUROSEMIDE [Concomitant]
  8. COUMADIN [Suspect]
     Dosage: 5 MILLIGRAM;
     Route: 048
     Dates: start: 20110610, end: 20120610
  9. ATORVASTATIN CALCIUM [Concomitant]

REACTIONS (3)
  - HAEMORRHOIDS [None]
  - ABDOMINAL PAIN [None]
  - ATRIOVENTRICULAR BLOCK COMPLETE [None]
